FAERS Safety Report 19191802 (Version 2)
Quarter: 2021Q2

REPORT INFORMATION
  Report Type: Spontaneous
  Country: GB (occurrence: US)
  Receive Date: 20210428
  Receipt Date: 20210429
  Transmission Date: 20210717
  Serious: No
  Sender: FDA-Public Use
  Company Number: GB-AIMMUNE THERAPEUTICS, INC.-2021AIMT00182

PATIENT

DRUGS (3)
  1. PALFORZIA [Suspect]
     Active Substance: PEANUT
     Indication: FOOD ALLERGY
     Dosage: 20 MG, 1X/DAY
     Route: 048
  2. PALFORZIA [Suspect]
     Active Substance: PEANUT
     Dosage: 80 MG, 1X/DAY
     Route: 048
     Dates: start: 20201121
  3. ZYRTEC [Concomitant]
     Active Substance: CETIRIZINE HYDROCHLORIDE
     Indication: FOOD ALLERGY

REACTIONS (5)
  - Eosinophilic oesophagitis [Unknown]
  - Urticaria [Unknown]
  - Swelling [Unknown]
  - Sensation of foreign body [Recovered/Resolved]
  - Dysphagia [Recovered/Resolved]
